FAERS Safety Report 17904836 (Version 1)
Quarter: 2020Q2

REPORT INFORMATION
  Report Type: Spontaneous
  Country: US (occurrence: US)
  Receive Date: 20200616
  Receipt Date: 20200616
  Transmission Date: 20200714
  Serious: No
  Sender: FDA-Public Use
  Company Number: US-ROCHE-2430146

PATIENT
  Age: 8 Year
  Sex: Female
  Weight: 36.32 kg

DRUGS (1)
  1. ACTEMRA [Suspect]
     Active Substance: TOCILIZUMAB
     Indication: JUVENILE IDIOPATHIC ARTHRITIS
     Dosage: PATIENT HAD ONE 160 MG DOSE
     Route: 042
     Dates: start: 20190914

REACTIONS (5)
  - Flushing [Unknown]
  - Peripheral swelling [Unknown]
  - Wheezing [Unknown]
  - Lip swelling [Unknown]
  - Swelling face [Unknown]

NARRATIVE: CASE EVENT DATE: 20190928
